FAERS Safety Report 7177214-3 (Version None)
Quarter: 2010Q4

REPORT INFORMATION
  Report Type: 
  Country: None (occurrence: None)
  Receive Date: 20101220
  Receipt Date: 20101208
  Transmission Date: 20110411
  Serious: Yes (Death, Other)
  Sender: FDA-Public Use
  Company Number: DE-ROCHE-737425

PATIENT
  Sex: Female
  Weight: 98 kg

DRUGS (2)
  1. BEVACIZUMAB [Suspect]
     Route: 042
     Dates: start: 20100506, end: 20100819
  2. PACLITAXEL [Suspect]
     Route: 042
     Dates: start: 20100506, end: 20100819

REACTIONS (6)
  - CEREBROVASCULAR ACCIDENT [None]
  - MALIGNANT NEOPLASM PROGRESSION [None]
  - METASTASES TO MENINGES [None]
  - PLEURAL EFFUSION [None]
  - PNEUMONIA [None]
  - RESPIRATORY FAILURE [None]
